FAERS Safety Report 8535461 (Version 2)
Quarter: 2013Q1

REPORT INFORMATION
  Report Type: Spontaneous
  Country: US (occurrence: None)
  Receive Date: 20120418
  Receipt Date: 20130313
  Transmission Date: 20140127
  Serious: No
  Sender: FDA-Public Use
  Company Number: AEUSA201100357

PATIENT
  Age: 45 Year
  Sex: Male
  Weight: 91.63 kg

DRUGS (7)
  1. PROLASTIN-C [Suspect]
     Dosage: 10 GM, QOW, IV
     Route: 042
     Dates: start: 20100312
  2. ALTACE [Concomitant]
  3. IBUPROFEN [Concomitant]
  4. ZANTAC [Concomitant]
  5. TOPROL XL [Concomitant]
  6. CLARINEX [Concomitant]
  7. CARDIZEM [Concomitant]

REACTIONS (1)
  - DRUG SCREEN FALSE POSITIVE [None]
